FAERS Safety Report 8310625-9 (Version None)
Quarter: 2012Q2

REPORT INFORMATION
  Report Type: 
  Country: None (occurrence: None)
  Receive Date: 20120425
  Receipt Date: 20120425
  Transmission Date: 20120825
  Serious: Yes (Hospitalization)
  Sender: FDA-Public Use
  Company Number: None

PATIENT
  Age: 38 Year
  Sex: Female
  Weight: 88.904 kg

DRUGS (2)
  1. BACTRIM [Suspect]
     Indication: STAPHYLOCOCCAL INFECTION
     Route: 048
     Dates: start: 20120414, end: 20120417
  2. BACTRIM [Suspect]
     Indication: STAPHYLOCOCCAL INFECTION
     Route: 048

REACTIONS (5)
  - STEVENS-JOHNSON SYNDROME [None]
  - VISION BLURRED [None]
  - DIZZINESS [None]
  - HYPERTENSION [None]
  - BRADYCARDIA [None]
